FAERS Safety Report 12748890 (Version 1)
Quarter: 2016Q3

REPORT INFORMATION
  Report Type: Spontaneous
  Country: US (occurrence: US)
  Receive Date: 20160915
  Receipt Date: 20160915
  Transmission Date: 20161109
  Serious: No
  Sender: FDA-Public Use
  Company Number: US-ASTELLAS-2016US009881

PATIENT
  Sex: Male

DRUGS (1)
  1. XTANDI [Suspect]
     Active Substance: ENZALUTAMIDE
     Indication: PROSTATE CANCER
     Dosage: 120 MG (40 MG X 3 CAPSULES), ONCE DAILY
     Route: 048
     Dates: start: 20160209

REACTIONS (5)
  - Fatigue [Unknown]
  - Treatment failure [Unknown]
  - Prostatic specific antigen increased [Unknown]
  - Underdose [Unknown]
  - Decreased appetite [Unknown]
